FAERS Safety Report 23716974 (Version 1)
Quarter: 2024Q2

REPORT INFORMATION
  Report Type: Spontaneous
  Country: ES (occurrence: ES)
  Receive Date: 20240408
  Receipt Date: 20240408
  Transmission Date: 20240716
  Serious: Yes (Other)
  Sender: FDA-Public Use
  Company Number: None

PATIENT
  Age: 95 Year
  Sex: Female

DRUGS (3)
  1. QUETIAPINE [Interacting]
     Active Substance: QUETIAPINE
     Indication: Agitation
     Dosage: BID?DAILY DOSE: 50 MILLIGRAM
     Route: 048
     Dates: start: 20240220
  2. QUETIAPINE [Interacting]
     Active Substance: QUETIAPINE
     Indication: Hallucination, visual
     Dosage: BID?DAILY DOSE: 50 MILLIGRAM
     Route: 048
     Dates: start: 20240220
  3. CLONAZEPAM [Interacting]
     Active Substance: CLONAZEPAM
     Indication: Agitation
     Dosage: 60 TABLETS?DAILY DOSE: 1 MILLIGRAM
     Route: 048
     Dates: start: 20240220, end: 20240223

REACTIONS (3)
  - Depressed level of consciousness [Recovering/Resolving]
  - Somnolence [Recovered/Resolved]
  - Off label use [Unknown]

NARRATIVE: CASE EVENT DATE: 20240220
